FAERS Safety Report 25528705 (Version 1)
Quarter: 2025Q3

REPORT INFORMATION
  Report Type: Spontaneous
  Country: US (occurrence: US)
  Receive Date: 20250708
  Receipt Date: 20250708
  Transmission Date: 20251020
  Serious: No
  Sender: AJANTA PHARMA USA INC
  Company Number: US-AJANTA-2025AJA00088

PATIENT
  Age: 27 Year
  Sex: Female
  Weight: 120 kg

DRUGS (4)
  1. CHOLESTYRAMINE [Suspect]
     Active Substance: CHOLESTYRAMINE
     Indication: Abdominal pain upper
     Route: 048
     Dates: start: 202506, end: 202506
  2. CHOLESTYRAMINE [Suspect]
     Active Substance: CHOLESTYRAMINE
     Route: 048
     Dates: end: 2025
  3. CHOLESTYRAMINE [Suspect]
     Active Substance: CHOLESTYRAMINE
     Route: 048
     Dates: start: 2025, end: 2025
  4. CHOLESTYRAMINE [Suspect]
     Active Substance: CHOLESTYRAMINE
     Route: 048
     Dates: start: 202506

REACTIONS (4)
  - Abdominal discomfort [Unknown]
  - Drug ineffective for unapproved indication [Unknown]
  - Product taste abnormal [Unknown]
  - Product quality issue [Unknown]

NARRATIVE: CASE EVENT DATE: 20250601
